FAERS Safety Report 18148498 (Version 1)
Quarter: 2020Q3

REPORT INFORMATION
  Report Type: Report from Study
  Country: None (occurrence: US)
  Receive Date: 20200814
  Receipt Date: 20200814
  Transmission Date: 20201103
  Serious: Yes (Other)
  Sender: FDA-Public Use
  Company Number: US-ABBVIE-20K-163-3379739-00

PATIENT
  Sex: Male
  Weight: 87.62 kg

DRUGS (2)
  1. HUMIRA [Suspect]
     Active Substance: ADALIMUMAB
     Route: 058
  2. HUMIRA [Suspect]
     Active Substance: ADALIMUMAB
     Indication: RHEUMATOID ARTHRITIS
     Route: 058
     Dates: start: 2011

REACTIONS (8)
  - Spinal operation [Not Recovered/Not Resolved]
  - Spinal operation [Not Recovered/Not Resolved]
  - Nerve compression [Unknown]
  - Spinal cord injury lumbar [Recovering/Resolving]
  - Back pain [Recovering/Resolving]
  - Scar [Unknown]
  - Procedural pain [Unknown]
  - Fatigue [Not Recovered/Not Resolved]

NARRATIVE: CASE EVENT DATE: 2011
